FAERS Safety Report 9082277 (Version 1)
Quarter: 2013Q1

REPORT INFORMATION
  Report Type: Report from Study
  Country: US (occurrence: US)
  Receive Date: 20130130
  Receipt Date: 20130130
  Transmission Date: 20140127
  Serious: No
  Sender: FDA-Public Use
  Company Number: US-ABBOTT-12P-163-0962698-00

PATIENT
  Sex: Female

DRUGS (1)
  1. HUMIRA 40 MG/0.8 ML PEN [Suspect]
     Indication: OFF LABEL USE
     Dates: start: 201103, end: 201203

REACTIONS (8)
  - Lupus-like syndrome [Recovered/Resolved]
  - Inflammation [Recovered/Resolved]
  - Abasia [Recovered/Resolved]
  - Joint swelling [Recovered/Resolved]
  - Feeling hot [Recovered/Resolved]
  - Pain [Recovered/Resolved]
  - Painful respiration [Recovered/Resolved]
  - Off label use [Recovered/Resolved]
